FAERS Safety Report 15066128 (Version 2)
Quarter: 2018Q3

REPORT INFORMATION
  Report Type: Report from Study
  Country: US (occurrence: US)
  Receive Date: 20180626
  Receipt Date: 20180702
  Transmission Date: 20181010
  Serious: Yes (Other)
  Sender: FDA-Public Use
  Company Number: US-ROCHE-2142847

PATIENT
  Age: 58 Year
  Sex: Male
  Weight: 81.6 kg

DRUGS (18)
  1. PREDNISON [Suspect]
     Active Substance: PREDNISONE
     Indication: RICHTER^S SYNDROME
     Dosage: DAY 5
     Route: 048
     Dates: start: 20170515
  2. DOCUSATE [Concomitant]
     Active Substance: DOCUSATE
  3. DOCUSATE SODIUM. [Concomitant]
     Active Substance: DOCUSATE SODIUM
  4. LORAZEPAM. [Concomitant]
     Active Substance: LORAZEPAM
  5. VENETOCLAX. [Suspect]
     Active Substance: VENETOCLAX
     Indication: RICHTER^S SYNDROME
     Route: 048
     Dates: start: 20180606
  6. ONDANSETRON [Concomitant]
     Active Substance: ONDANSETRON
  7. SENNA [Concomitant]
     Active Substance: SENNA LEAF\SENNOSIDES\SENNOSIDES A AND B
  8. ACYCLOVIR. [Concomitant]
     Active Substance: ACYCLOVIR
  9. ALBUTEROL. [Concomitant]
     Active Substance: ALBUTEROL
  10. BENZONATATE. [Concomitant]
     Active Substance: BENZONATATE
  11. NYSTATIN. [Concomitant]
     Active Substance: NYSTATIN
  12. ETOPOSIDE. [Suspect]
     Active Substance: ETOPOSIDE
     Indication: RICHTER^S SYNDROME
     Dosage: DAYS 1?4
     Route: 042
     Dates: start: 20170515
  13. DOXORUBICIN [Suspect]
     Active Substance: DOXORUBICIN
     Indication: RICHTER^S SYNDROME
     Dosage: DAYS 1?4
     Route: 042
     Dates: start: 20170515
  14. VINCRISTIN [Suspect]
     Active Substance: VINCRISTINE
     Indication: RICHTER^S SYNDROME
     Dosage: DAYS 1?4
     Route: 042
     Dates: start: 20170515
  15. CYCLOPHOSPHAMIDE. [Suspect]
     Active Substance: CYCLOPHOSPHAMIDE
     Indication: RICHTER^S SYNDROME
     Dosage: DAY 5
     Route: 042
     Dates: start: 20170515
  16. RITUXIMAB. [Suspect]
     Active Substance: RITUXIMAB
     Indication: RICHTER^S SYNDROME
     Dosage: DAY 1
     Route: 042
     Dates: start: 20170515
  17. SULPHAMETHOXAZOLE + TRIMETHOPRIM [Concomitant]
     Active Substance: SULFAMETHOXAZOLE\TRIMETHOPRIM
  18. CHLORHEXIDIN [Concomitant]
     Active Substance: CHLORHEXIDINE

REACTIONS (2)
  - Alanine aminotransferase increased [Recovered/Resolved]
  - Aspartate aminotransferase increased [Recovered/Resolved]

NARRATIVE: CASE EVENT DATE: 20170601
